FAERS Safety Report 9443614 (Version 2)
Quarter: 2013Q3

REPORT INFORMATION
  Report Type: Spontaneous
  Country: US (occurrence: US)
  Receive Date: 20130806
  Receipt Date: 20130808
  Transmission Date: 20140515
  Serious: Yes (Hospitalization, Other)
  Sender: FDA-Public Use
  Company Number: CHPA2013US012339

PATIENT
  Age: 77 Year
  Sex: Male

DRUGS (2)
  1. VOLTAREN GEL [Suspect]
     Indication: BACK PAIN
     Dosage: UNK, PRN
     Route: 061
     Dates: start: 2000
  2. WARFARIN [Concomitant]

REACTIONS (5)
  - Myocardial infarction [Recovered/Resolved]
  - Medical device complication [Recovered/Resolved]
  - Fall [Unknown]
  - Drug administered at inappropriate site [Unknown]
  - Off label use [Unknown]
